FAERS Safety Report 7033504-6 (Version None)
Quarter: 2010Q4

REPORT INFORMATION
  Report Type: 
  Country: None (occurrence: None)
  Receive Date: 20101007
  Receipt Date: 20100922
  Transmission Date: 20110411
  Serious: Yes (Other)
  Sender: FDA-Public Use
  Company Number: PHEH2010US03234

PATIENT
  Sex: Male
  Weight: 72.109 kg

DRUGS (8)
  1. EXJADE [Suspect]
     Indication: THALASSAEMIA
     Dosage: 1500 MG, QD
     Route: 048
     Dates: start: 20071008, end: 20091101
  2. EXJADE [Suspect]
     Indication: HAEMOCHROMATOSIS
  3. EXJADE [Suspect]
     Indication: IRON OVERLOAD
  4. LOTREL [Concomitant]
  5. PLAVIX [Concomitant]
  6. SOTALOL [Concomitant]
  7. DIGOXIN [Concomitant]
  8. CHEMOTHERAPEUTICS NOS [Concomitant]

REACTIONS (13)
  - ACUTE MYELOID LEUKAEMIA [None]
  - ANAEMIA [None]
  - BLAST CELL COUNT INCREASED [None]
  - BONE MARROW RETICULIN FIBROSIS [None]
  - EOSINOPHILIA [None]
  - HEPATIC FAILURE [None]
  - LEUKOPENIA [None]
  - MALIGNANT NEOPLASM PROGRESSION [None]
  - MARROW HYPERPLASIA [None]
  - MEGAKARYOCYTES [None]
  - MYELODYSPLASTIC SYNDROME [None]
  - MYELODYSPLASTIC SYNDROME TRANSFORMATION [None]
  - WHITE BLOOD CELL COUNT DECREASED [None]
